FAERS Safety Report 9224743 (Version 1)
Quarter: 2013Q2

REPORT INFORMATION
  Report Type: Not Available
  Country: NL (occurrence: NL)
  Receive Date: 20130411
  Receipt Date: 20130411
  Transmission Date: 20140414
  Serious: Yes (Other)
  Sender: FDA-Public Use
  Company Number: NL-ASTELLAS-2013EU003271

PATIENT
  Age: 64 Year
  Sex: Male

DRUGS (6)
  1. VESICARE [Suspect]
     Dosage: 5 MG, UID/QD
     Route: 065
     Dates: start: 20130214
  2. PERSANTIN [Concomitant]
     Dosage: 200 MG, BID
     Route: 065
  3. SIMVASTATIN [Concomitant]
     Dosage: 20 MG, UID/QD
     Route: 065
  4. COMBODART [Concomitant]
     Dosage: 1 DF, UID/QD
     Route: 065
     Dates: start: 20130214
  5. CARBASALATE CALCIUM [Concomitant]
     Dosage: 100 MG, UID/QD
     Route: 065
  6. OMEPRAZOLE [Concomitant]
     Dosage: 40 MG, UID/QD
     Route: 065

REACTIONS (1)
  - Restless legs syndrome [Unknown]
